FAERS Safety Report 7312816-2 (Version None)
Quarter: 2011Q1

REPORT INFORMATION
  Report Type: 
  Country: None (occurrence: None)
  Receive Date: 20110224
  Receipt Date: 20100215
  Transmission Date: 20110831
  Serious: No
  Sender: FDA-Public Use
  Company Number: US-MYLANLABS-2010S1002653

PATIENT
  Age: 70 Year
  Sex: Male

DRUGS (6)
  1. LISINOPRIL [Concomitant]
     Indication: BLOOD PRESSURE INCREASED
     Route: 048
  2. LIPITOR [Concomitant]
     Indication: BLOOD CHOLESTEROL INCREASED
     Route: 048
  3. CREON [Concomitant]
     Indication: PANCREATITIS
     Route: 048
     Dates: start: 20091028
  4. M.V.I. [Concomitant]
     Route: 048
  5. FISH OIL [Concomitant]
     Route: 048
  6. METOPROLOL TARTRATE [Suspect]
     Indication: CARDIAC DISORDER
     Route: 048
     Dates: start: 20091028, end: 20100112

REACTIONS (4)
  - COUGH [None]
  - POLLAKIURIA [None]
  - MOOD SWINGS [None]
  - ALOPECIA [None]
